FAERS Safety Report 6739327-7 (Version None)
Quarter: 2010Q2

REPORT INFORMATION
  Report Type: 
  Country: None (occurrence: None)
  Receive Date: 20100517
  Receipt Date: 20090730
  Transmission Date: 20101027
  Serious: Yes (Hospitalization)
  Sender: FDA-Public Use
  Company Number: SPV1-2009-01293

PATIENT
  Age: 81 Year
  Sex: Male
  Weight: 92.1 kg

DRUGS (2)
  1. FOSRENOL [Suspect]
     Indication: HYPERPHOSPHATAEMIA
     Dosage: 1000 MG, 3X/DAY:TID, ORAL
     Route: 048
     Dates: start: 20080901
  2. COUMADIN [Concomitant]

REACTIONS (1)
  - HYPOTENSION [None]
